FAERS Safety Report 14157192 (Version 1)
Quarter: 2017Q4

REPORT INFORMATION
  Report Type: Report from Study
  Country: US (occurrence: US)
  Receive Date: 20171103
  Receipt Date: 20171103
  Transmission Date: 20180321
  Serious: Yes (Hospitalization, Other)
  Sender: FDA-Public Use
  Company Number: US-GILEAD-2017-0302460

PATIENT
  Age: 68 Year
  Sex: Male

DRUGS (5)
  1. AMBRISENTAN [Suspect]
     Active Substance: AMBRISENTAN
     Indication: PULMONARY ARTERIAL HYPERTENSION
     Dosage: 10 MG, QD
     Route: 048
     Dates: start: 20090414
  2. AMBRISENTAN [Suspect]
     Active Substance: AMBRISENTAN
     Indication: PULMONARY SARCOIDOSIS
  3. TYVASO [Concomitant]
     Active Substance: TREPROSTINIL
  4. OXYGEN. [Concomitant]
     Active Substance: OXYGEN
  5. TORSEMIDE. [Suspect]
     Active Substance: TORSEMIDE
     Indication: PRODUCT USED FOR UNKNOWN INDICATION
     Route: 065

REACTIONS (7)
  - Acute respiratory failure [Unknown]
  - Abdominal distension [Unknown]
  - Orthopnoea [Unknown]
  - Syncope [Unknown]
  - Hypovolaemia [Unknown]
  - Pneumonia [Unknown]
  - Blood pressure decreased [Unknown]
